FAERS Safety Report 16087879 (Version 1)
Quarter: 2019Q1

REPORT INFORMATION
  Report Type: Spontaneous
  Country: GB (occurrence: GB)
  Receive Date: 20190319
  Receipt Date: 20190319
  Transmission Date: 20190418
  Serious: Yes (Hospitalization)
  Sender: FDA-Public Use
  Company Number: GB-ACCORD-112912

PATIENT
  Age: 24 Year
  Sex: Female
  Weight: 64.5 kg

DRUGS (5)
  1. CODEINE [Concomitant]
     Active Substance: CODEINE
  2. LACTULOSE. [Concomitant]
     Active Substance: LACTULOSE
  3. ORAMORPH [Concomitant]
     Active Substance: MORPHINE SULFATE
  4. METHOTREXATE. [Suspect]
     Active Substance: METHOTREXATE
     Indication: PRODUCT USED FOR UNKNOWN INDICATION
     Route: 030
     Dates: start: 20181020
  5. PARACETAMOL [Concomitant]
     Active Substance: ACETAMINOPHEN

REACTIONS (2)
  - Diarrhoea haemorrhagic [Not Recovered/Not Resolved]
  - Maternal exposure during pregnancy [Unknown]

NARRATIVE: CASE EVENT DATE: 20181021
